FAERS Safety Report 19020060 (Version 1)
Quarter: 2021Q1

REPORT INFORMATION
  Report Type: Spontaneous
  Country: GB (occurrence: GB)
  Receive Date: 20210317
  Receipt Date: 20210317
  Transmission Date: 20210420
  Serious: Yes (Death, Other)
  Sender: FDA-Public Use
  Company Number: GB-AMGEN-GBRSP2021040337

PATIENT

DRUGS (2)
  1. PLERIXAFOR [Concomitant]
     Active Substance: PLERIXAFOR
     Indication: HAEMATOPOIETIC STEM CELL MOBILISATION
     Dosage: 6 PATIENTS RECEIVED 0.24MG/KG/DAY , 15 PATIENTS RECEIVED 0.16MG/KG/DAY
     Route: 065
  2. FILGRASTIM [Suspect]
     Active Substance: FILGRASTIM
     Indication: HAEMATOPOIETIC STEM CELL MOBILISATION
     Dosage: 10 MICROGRAM/KILOGRAM
     Route: 065

REACTIONS (5)
  - Delayed engraftment [Unknown]
  - Pneumonia [Fatal]
  - Engraft failure [Unknown]
  - Malignant neoplasm progression [Fatal]
  - Sepsis [Fatal]
